FAERS Safety Report 19741683 (Version 2)
Quarter: 2021Q3

REPORT INFORMATION
  Report Type: Spontaneous
  Country: CA (occurrence: CA)
  Receive Date: 20210824
  Receipt Date: 20210902
  Transmission Date: 20211014
  Serious: Yes (Other)
  Sender: FDA-Public Use
  Company Number: CA-PFIZER INC-202101035143

PATIENT
  Age: 11 Year
  Sex: Male
  Weight: 51.7 kg

DRUGS (7)
  1. CEFTRIAXONE. [Concomitant]
     Active Substance: CEFTRIAXONE
     Indication: STREPTOCOCCAL INFECTION
     Dosage: 500 MG, 3X/DAY (EVERY 8 HOURS)
     Route: 042
  2. LINEZOLID. [Suspect]
     Active Substance: LINEZOLID
     Indication: DEVICE RELATED INFECTION
     Dosage: 600 MG, 2X/DAY
     Route: 048
  3. LINEZOLID. [Suspect]
     Active Substance: LINEZOLID
     Dosage: 300 MG, 1X/DAY
     Route: 048
  4. METRONIDAZOLE. [Suspect]
     Active Substance: METRONIDAZOLE
     Indication: DEVICE RELATED INFECTION
     Dosage: 500 MG, 3X/DAY (Q8H)
  5. METRONIDAZOLE. [Suspect]
     Active Substance: METRONIDAZOLE
     Dosage: 30.5 MG/KG, DAILY (30.5 MG/KG/DAY)
     Route: 048
  6. LINEZOLID. [Suspect]
     Active Substance: LINEZOLID
     Dosage: 30.5 MG/KG, DAILY (30.5 MG/KG/DAY)
  7. CEFTRIAXONE. [Concomitant]
     Active Substance: CEFTRIAXONE
     Indication: DEVICE RELATED INFECTION

REACTIONS (3)
  - Product use issue [Unknown]
  - Neuropathy peripheral [Recovered/Resolved]
  - Off label use [Unknown]
